FAERS Safety Report 4554855-0 (Version None)
Quarter: 2004Q4

REPORT INFORMATION
  Report Type: 
  Country: None (occurrence: None)
  Receive Date: 20041222
  Receipt Date: 20041112
  Transmission Date: 20050328
  Serious: No
  Sender: FDA-Public Use
  Company Number: 208942

PATIENT
  Age: 67 Year
  Sex: Male

DRUGS (13)
  1. AVASTIN [Suspect]
     Indication: DRUG USE FOR UNKNOWN INDICATION
     Dosage: 400 MG, INTRAVENOUS
     Route: 042
     Dates: start: 20040908
  2. OXALIPLATIN [Suspect]
     Indication: DRUG USE FOR UNKNOWN INDICATION
     Dosage: 200 MG, Q2W, INTRAVENOUS
     Route: 042
     Dates: start: 20040908
  3. FLUOROURACIL [Concomitant]
  4. LEUCOVORIN CALCIUM [Concomitant]
  5. DIGOXIN [Concomitant]
  6. TRICOR [Concomitant]
  7. LIPITOR [Concomitant]
  8. VERAPAMIL [Concomitant]
  9. XANAX [Concomitant]
  10. MVI (MULTIVITAMINS NOS) [Concomitant]
  11. LECITHIN (LECITHIN) [Concomitant]
  12. VITAMINS C + E (ASCORBIC ACID, VITAMIN E) [Concomitant]
  13. LOVENOX [Concomitant]

REACTIONS (1)
  - ODYNOPHAGIA [None]
